FAERS Safety Report 24972613 (Version 1)
Quarter: 2025Q1

REPORT INFORMATION
  Report Type: Report from Study
  Country: GB (occurrence: GB)
  Receive Date: 20250215
  Receipt Date: 20250215
  Transmission Date: 20250408
  Serious: Yes (Hospitalization)
  Sender: SAMSUNG BIOEPIS
  Company Number: GB-SAMSUNG BIOEPIS-SB-2025-05269

PATIENT
  Sex: Male

DRUGS (1)
  1. PYZCHIVA [Suspect]
     Active Substance: USTEKINUMAB-TTWE
     Indication: Crohn^s disease
     Dosage: 8 WEEKS AFTER INDUCTION;
     Route: 058
     Dates: start: 20250123

REACTIONS (5)
  - Gastric perforation [Unknown]
  - Gastric ulcer [Unknown]
  - Weight decreased [Unknown]
  - Mental disorder [Unknown]
  - Asthenia [Unknown]
